FAERS Safety Report 8602554-8 (Version None)
Quarter: 2012Q3

REPORT INFORMATION
  Report Type: 
  Country: None (occurrence: None)
  Receive Date: 20120817
  Receipt Date: 20120810
  Transmission Date: 20120928
  Serious: Yes (Other)
  Sender: FDA-Public Use
  Company Number: PHEH2012US013585

PATIENT
  Sex: Male
  Weight: 76.4 kg

DRUGS (6)
  1. TEMAZEPAM [Concomitant]
     Indication: SLEEP DISORDER
     Dosage: 1 DF, QHS
     Route: 048
     Dates: start: 19970101
  2. HYDROCODONE [Concomitant]
     Indication: ARTHRALGIA
     Dosage: (5/500 MG), 2 DF, BID
     Route: 048
     Dates: start: 19960101
  3. EXCEDRIN (MIGRAINE) [Concomitant]
     Indication: HEADACHE
     Dosage: 1 DF, PRN
     Route: 048
     Dates: start: 20010101
  4. GILENYA [Suspect]
     Indication: MULTIPLE SCLEROSIS
     Dosage: 1 DF, QD
     Route: 048
     Dates: start: 20110203
  5. CYMBALTA [Concomitant]
  6. ZANAFLEX [Concomitant]

REACTIONS (2)
  - SKIN LESION [None]
  - ATYPICAL FIBROXANTHOMA [None]
